FAERS Safety Report 10149585 (Version 3)
Quarter: 2014Q2

REPORT INFORMATION
  Report Type: Spontaneous
  Country: US (occurrence: US)
  Receive Date: 20140502
  Receipt Date: 20140516
  Transmission Date: 20141212
  Serious: No
  Sender: FDA-Public Use
  Company Number: US-PFIZER INC-2013148608

PATIENT
  Age: 57 Year
  Sex: Female
  Weight: 58.96 kg

DRUGS (2)
  1. LYRICA [Suspect]
     Indication: PAIN IN EXTREMITY
     Dosage: 75 MG, 2X/DAY
     Route: 048
     Dates: start: 2011
  2. AVONEX [Concomitant]
     Indication: MULTIPLE SCLEROSIS
     Dosage: 30 UG, WEEKLY

REACTIONS (2)
  - Somnolence [Unknown]
  - Impaired driving ability [Unknown]
